FAERS Safety Report 15080245 (Version 1)
Quarter: 2018Q3

REPORT INFORMATION
  Report Type: Spontaneous
  Country: DE (occurrence: DE)
  Receive Date: 20180628
  Receipt Date: 20180628
  Transmission Date: 20181010
  Serious: Yes (Hospitalization)
  Sender: FDA-Public Use
  Company Number: DE-TEVA-2018-DE-912829

PATIENT
  Age: 20 Year
  Sex: Male
  Weight: 103.8 kg

DRUGS (13)
  1. PEGFILGRASTIM [Concomitant]
     Active Substance: PEGFILGRASTIM
     Dosage: 6 MG/THE, SCHEME, INJECTION/INFUSION SOLUTION
     Route: 042
  2. ETOPOSIDE. [Suspect]
     Active Substance: ETOPOSIDE
     Dosage: 250 MG/M?, SCHEMATIC, INJECTION/INFUSION SOLUTION
     Route: 042
  3. RITUXIMAB. [Suspect]
     Active Substance: RITUXIMAB
     Dosage: 375 MG/M?, SCHEMATIC, INJECTION/INFUSION SOLUTION
     Route: 042
  4. ONDANSETRON [Concomitant]
     Active Substance: ONDANSETRON
     Dosage: SCHEMA
     Route: 048
  5. CAPHOSOL [Concomitant]
     Active Substance: CALCIUM CHLORIDE\SODIUM CHLORIDE\SODIUM PHOSPHATE, DIBASIC, ANHYDROUS\SODIUM PHOSPHATE, MONOBASIC, ANHYDROUS
     Dosage: 7.8|4.8|1.35 MG, 1?1?1?1, MOUTHWASH
     Route: 061
  6. CIPROFLOXACIN. [Concomitant]
     Active Substance: CIPROFLOXACIN
     Dosage: SCHEMA
     Route: 048
  7. ACICLOVIR [Concomitant]
     Active Substance: ACYCLOVIR
     Dosage: 1?1?1?0
     Route: 048
  8. AMPHO?MORONAL [Concomitant]
     Active Substance: AMPHOTERICIN B
     Dosage: SCHEMA, LOZENGES
     Route: 048
  9. METHOTREXATE. [Suspect]
     Active Substance: METHOTREXATE
     Dosage: 1500 MG/?, SCHEME, INJECTION/INFUSION SOLUTION
     Route: 042
  10. CYTARABIN [Suspect]
     Active Substance: CYTARABINE
     Dosage: 4000 MG/M?, SCHEMATIC, INJECTION/INFUSION SOLUTION
     Route: 042
  11. COTRIM FORTE [Concomitant]
     Active Substance: SULFAMETHOXAZOLE\TRIMETHOPRIM
     Dosage: 800|160 MG, SCHEMA
     Route: 048
  12. PANTOPRAZOL [Concomitant]
     Active Substance: PANTOPRAZOLE SODIUM
     Dosage: 1?0?0?0
     Route: 048
  13. VINDESIN [Suspect]
     Active Substance: VINDESINE
     Dosage: 3 MG/?, SCHEME, INJECTION/INFUSION SOLUTION
     Route: 042

REACTIONS (5)
  - Inflammation [Unknown]
  - Anaemia [Unknown]
  - Epistaxis [Unknown]
  - Pyrexia [Unknown]
  - Dysphagia [Unknown]
